FAERS Safety Report 19114349 (Version 1)
Quarter: 2021Q2

REPORT INFORMATION
  Report Type: Spontaneous
  Country: US (occurrence: US)
  Receive Date: 20210409
  Receipt Date: 20210409
  Transmission Date: 20210717
  Serious: Yes (Other)
  Sender: FDA-Public Use
  Company Number: US-ALLERGAN-2105473US

PATIENT
  Age: 39 Year
  Sex: Female

DRUGS (2)
  1. LILETTA [Suspect]
     Active Substance: LEVONORGESTREL
     Indication: CONTRACEPTION
     Dosage: 52 MG, SINGLE
     Route: 015
     Dates: start: 20210114, end: 20210114
  2. PRENATAL VITAMINS                  /02014401/ [Concomitant]
     Active Substance: VITAMINS
     Indication: NUTRITIONAL SUPPLEMENTATION

REACTIONS (1)
  - Uterine perforation [Unknown]

NARRATIVE: CASE EVENT DATE: 20210114
